FAERS Safety Report 6617527-4 (Version None)
Quarter: 2010Q1

REPORT INFORMATION
  Report Type: 
  Country: None (occurrence: None)
  Receive Date: 20100302
  Receipt Date: 20100212
  Transmission Date: 20100710
  Serious: Yes (Life-Threatening, Hospitalization, Other)
  Sender: FDA-Public Use
  Company Number: 20100043

PATIENT
  Age: 73 Year
  Sex: Female
  Weight: 95 kg

DRUGS (3)
  1. VENOFER [Suspect]
     Indication: RENAL FAILURE CHRONIC
     Dosage: 50 MG SLOW IV PUSH, WEEKLY INTRAVENOUS
     Route: 042
     Dates: start: 20100126, end: 20100126
  2. EPOGEN [Concomitant]
  3. HECTOROL [Concomitant]

REACTIONS (2)
  - BRADYCARDIA [None]
  - UNRESPONSIVE TO STIMULI [None]
